FAERS Safety Report 5382531-3 (Version None)
Quarter: 2007Q3

REPORT INFORMATION
  Report Type: 
  Country: None (occurrence: None)
  Receive Date: 20070710
  Receipt Date: 20070629
  Transmission Date: 20080115
  Serious: Yes (Other)
  Sender: FDA-Public Use
  Company Number: PHBS2007US11168

PATIENT
  Age: 54 Year
  Sex: Female

DRUGS (6)
  1. ZOLEDRONIC ACID [Suspect]
     Indication: BREAST CANCER
     Dosage: 4 MG, UNK
     Route: 042
     Dates: start: 19910101
  2. ZOLEDRONIC ACID [Suspect]
     Dosage: 4 MG, QW
     Route: 042
     Dates: start: 19980101
  3. GRANISETRON [Concomitant]
  4. DEXAMETHASONE SODIUM PHOSPHATE [Concomitant]
  5. DIPHENHYDRAMINE HCL [Concomitant]
  6. CIMETIDINE HCL [Concomitant]

REACTIONS (16)
  - BIOPSY GINGIVAL [None]
  - BONE DEBRIDEMENT [None]
  - BONE DISORDER [None]
  - BONE FISTULA [None]
  - ERYTHEMA [None]
  - IMPAIRED HEALING [None]
  - OSTEOMYELITIS [None]
  - OSTEONECROSIS [None]
  - PRIMARY SEQUESTRUM [None]
  - PROCEDURAL PAIN [None]
  - PURULENCE [None]
  - SKIN EROSION [None]
  - STENT PLACEMENT [None]
  - SURGERY [None]
  - TOOTH EXTRACTION [None]
  - WOUND TREATMENT [None]
